FAERS Safety Report 9204610 (Version 1)
Quarter: 2013Q2

REPORT INFORMATION
  Report Type: Spontaneous
  Country: US (occurrence: None)
  Receive Date: 20130401
  Receipt Date: 20130401
  Transmission Date: 20140414
  Serious: Yes (Other)
  Sender: FDA-Public Use
  Company Number: None

PATIENT
  Age: 43 Year
  Sex: Male

DRUGS (10)
  1. EGRIFTA [Suspect]
     Indication: HIV INFECTION
     Dosage: UD -} 2MG QD SC
     Route: 058
  2. ANDROGEL [Concomitant]
  3. LYRICA [Concomitant]
  4. OMEPRAZOLE [Concomitant]
  5. ENALAPRIL [Concomitant]
  6. ALPRAZOLAM [Concomitant]
  7. ACYCLOVIR [Concomitant]
  8. AMBIEN ER [Concomitant]
  9. FLEXERIL [Concomitant]
  10. IBUPROFEN [Concomitant]

REACTIONS (7)
  - Local swelling [None]
  - Local swelling [None]
  - Local swelling [None]
  - Hypoaesthesia [None]
  - Hypoaesthesia [None]
  - Hypoaesthesia [None]
  - Pain [None]
